FAERS Safety Report 8702418 (Version 2)
Quarter: 2012Q4

REPORT INFORMATION
  Report Type: 
  Country: US (occurrence: US)
  Receive Date: 20120803
  Receipt Date: 20121102
  Transmission Date: 20130627
  Serious: No
  Sender: FDA-Public Use
  Company Number: US-GLAXOSMITHKLINE-A0981967A

PATIENT
  Age: 72 Year
  Sex: Female

DRUGS (5)
  1. HORIZANT [Suspect]
     Indication: RESTLESS LEGS SYNDROME
     Dosage: 600MG Per day
     Route: 048
     Dates: start: 20120611
  2. UNSPECIFIED INGREDIENT [Suspect]
     Indication: EPILEPSY
     Route: 065
  3. CARBATROL [Concomitant]
  4. EVISTA [Concomitant]
  5. LISINOPRIL [Concomitant]

REACTIONS (6)
  - Strabismus [Recovered/Resolved]
  - Visual impairment [Unknown]
  - Feeling abnormal [Unknown]
  - Impaired driving ability [Unknown]
  - Accidental overdose [Unknown]
  - Drug interaction [Unknown]
